FAERS Safety Report 8172091-6 (Version None)
Quarter: 2012Q1

REPORT INFORMATION
  Report Type: 
  Country: None (occurrence: None)
  Receive Date: 20120228
  Receipt Date: 20120222
  Transmission Date: 20120608
  Serious: No
  Sender: FDA-Public Use
  Company Number: US-PFIZER INC-2012047450

PATIENT
  Sex: Female
  Weight: 71.655 kg

DRUGS (5)
  1. CELEBREX [Suspect]
     Indication: ARTHRITIS
     Dosage: 200 MG, 1X/DAY
     Route: 048
     Dates: start: 20120216
  2. CELEBREX [Suspect]
     Indication: BONE PAIN
  3. SINEMET [Concomitant]
     Indication: PARKINSON'S DISEASE
     Dosage: 25/100, 1X/DAY
  4. CELEBREX [Suspect]
     Indication: SPINAL COLUMN STENOSIS
  5. SINEMET CR [Concomitant]
     Indication: PARKINSON'S DISEASE
     Dosage: 25/100, 3X/DAY

REACTIONS (1)
  - HYPOAESTHESIA [None]
